FAERS Safety Report 14324227 (Version 2)
Quarter: 2018Q1

REPORT INFORMATION
  Report Type: Spontaneous
  Country: JP (occurrence: JP)
  Receive Date: 20171226
  Receipt Date: 20180326
  Transmission Date: 20180509
  Serious: No
  Sender: FDA-Public Use
  Company Number: PHJP2017JP035807

PATIENT
  Age: 62 Year
  Sex: Female
  Weight: 56 kg

DRUGS (6)
  1. TACROLIMUS. [Suspect]
     Active Substance: TACROLIMUS
     Indication: PSORIATIC ARTHROPATHY
     Dosage: 1.5 MG, QD
     Route: 048
     Dates: start: 20141112, end: 20171003
  2. CANDESARTAN. [Concomitant]
     Active Substance: CANDESARTAN
     Indication: HYPERTENSION
     Dosage: 4 MG, QD
     Route: 048
     Dates: start: 20111214
  3. LOXONIN [Concomitant]
     Active Substance: LOXOPROFEN SODIUM
     Indication: PSORIATIC ARTHROPATHY
     Dosage: 60 MG, TID
     Route: 048
     Dates: start: 20070531
  4. URSO [Concomitant]
     Active Substance: URSODIOL
     Indication: LIVER DISORDER
     Dosage: 200 MG, TID
     Route: 048
     Dates: start: 20121208, end: 20180209
  5. NEXIUM [Concomitant]
     Active Substance: ESOMEPRAZOLE MAGNESIUM
     Indication: PROPHYLAXIS AGAINST GASTROINTESTINAL ULCER
     Dosage: 20 MG, QD
     Route: 048
     Dates: start: 20140205
  6. COSENTYX [Suspect]
     Active Substance: SECUKINUMAB
     Indication: PSORIATIC ARTHROPATHY
     Dosage: 300 MG, UNK
     Route: 058
     Dates: start: 20170614, end: 20171101

REACTIONS (16)
  - Tenderness [Unknown]
  - Oral pain [Unknown]
  - Oral candidiasis [Unknown]
  - Weight decreased [Unknown]
  - Oropharyngeal pain [Unknown]
  - Stomatitis [Recovered/Resolved]
  - Thyroiditis subacute [Recovered/Resolved]
  - C-reactive protein increased [Unknown]
  - Oral discomfort [Unknown]
  - Blood immunoglobulin G increased [Unknown]
  - Coating in mouth [Unknown]
  - Feeding disorder [Recovering/Resolving]
  - Pharyngitis [Recovered/Resolved]
  - Goitre [Unknown]
  - Lymphadenitis [Unknown]
  - Lymphadenopathy [Recovered/Resolved]

NARRATIVE: CASE EVENT DATE: 201709
